FAERS Safety Report 12455159 (Version 1)
Quarter: 2016Q2

REPORT INFORMATION
  Report Type: Spontaneous
  Country: CH (occurrence: CH)
  Receive Date: 20160610
  Receipt Date: 20160610
  Transmission Date: 20160815
  Serious: Yes (Hospitalization, Other)
  Sender: FDA-Public Use
  Company Number: CH-ACTAVIS-2016-12061

PATIENT
  Age: 77 Year
  Sex: Female

DRUGS (3)
  1. DOCETAXEL (UNKNOWN) [Interacting]
     Active Substance: DOCETAXEL
     Indication: INVASIVE DUCTAL BREAST CARCINOMA
     Dosage: 1 CYCLE
     Route: 065
  2. AMIODARONE (UNKNOWN) [Interacting]
     Active Substance: AMIODARONE
     Indication: PALPITATIONS
     Dosage: UNK
     Route: 065
  3. PACLITAXEL (UNKNOWN) [Suspect]
     Active Substance: PACLITAXEL
     Indication: INVASIVE DUCTAL BREAST CARCINOMA
     Dosage: FIRST FOUR CYCLES
     Route: 065

REACTIONS (5)
  - Dysphagia [Recovered/Resolved]
  - Dehydration [Recovered/Resolved]
  - Drug interaction [Recovered/Resolved]
  - Blister [Recovered/Resolved]
  - Abdominal discomfort [Recovered/Resolved]
